FAERS Safety Report 18365196 (Version 1)
Quarter: 2020Q4

REPORT INFORMATION
  Report Type: Spontaneous
  Country: US (occurrence: US)
  Receive Date: 20201009
  Receipt Date: 20201009
  Transmission Date: 20210114
  Serious: Yes (Hospitalization)
  Sender: FDA-Public Use
  Company Number: None

PATIENT
  Age: 77 Year
  Sex: Male

DRUGS (1)
  1. COPAXONE [Suspect]
     Active Substance: GLATIRAMER ACETATE
     Indication: MULTIPLE SCLEROSIS
     Route: 058
     Dates: start: 200812

REACTIONS (5)
  - Fall [None]
  - Dehydration [None]
  - Haemoglobin decreased [None]
  - Infected skin ulcer [None]
  - Decubitus ulcer [None]

NARRATIVE: CASE EVENT DATE: 20200918
